FAERS Safety Report 21226960 (Version 1)
Quarter: 2022Q3

REPORT INFORMATION
  Report Type: Spontaneous
  Country: US (occurrence: US)
  Receive Date: 20220818
  Receipt Date: 20220818
  Transmission Date: 20221027
  Serious: Yes (Other)
  Sender: FDA-Public Use
  Company Number: US-AMGEN-USASP2022138705

PATIENT
  Age: 83 Year
  Sex: Female

DRUGS (1)
  1. MVASI [Suspect]
     Active Substance: BEVACIZUMAB-AWWB
     Indication: Product used for unknown indication
     Dosage: 400 MILLIGRAM (MVASI X1)
     Route: 065

REACTIONS (1)
  - Humerus fracture [Unknown]

NARRATIVE: CASE EVENT DATE: 20220714
